FAERS Safety Report 16532994 (Version 1)
Quarter: 2019Q3

REPORT INFORMATION
  Report Type: Spontaneous
  Country: US (occurrence: US)
  Receive Date: 20190523
  Receipt Date: 20190523
  Transmission Date: 20191004
  Serious: No
  Sender: FDA-Public Use
  Company Number: None

PATIENT
  Age: 63 Year
  Sex: Male

DRUGS (1)
  1. PREZISTA [Suspect]
     Active Substance: DARUNAVIR ETHANOLATE
     Indication: HIV INFECTION

REACTIONS (5)
  - Drug resistance [None]
  - Viral load increased [None]
  - Muscular weakness [None]
  - Muscle atrophy [None]
  - CD4 lymphocytes decreased [None]

NARRATIVE: CASE EVENT DATE: 20190523
